FAERS Safety Report 6522511-5 (Version None)
Quarter: 2009Q4

REPORT INFORMATION
  Report Type: 
  Country: None (occurrence: None)
  Receive Date: 20091230
  Receipt Date: 20091221
  Transmission Date: 20100525
  Serious: Yes (Hospitalization)
  Sender: FDA-Public Use
  Company Number: US-AMGEN-QUU382013

PATIENT
  Sex: Female

DRUGS (2)
  1. ENBREL [Suspect]
     Indication: ANKYLOSING SPONDYLITIS
     Route: 058
  2. METHOTREXATE [Concomitant]

REACTIONS (11)
  - AGITATION [None]
  - AMNESIA [None]
  - ANXIETY [None]
  - CRYING [None]
  - DEREALISATION [None]
  - INJECTION SITE PAIN [None]
  - INSOMNIA [None]
  - LIBIDO DECREASED [None]
  - MANIA [None]
  - MENTAL DISORDER [None]
  - TREMOR [None]
